FAERS Safety Report 17988122 (Version 1)
Quarter: 2020Q3

REPORT INFORMATION
  Report Type: Spontaneous
  Country: BE (occurrence: BE)
  Receive Date: 20200707
  Receipt Date: 20200707
  Transmission Date: 20201103
  Serious: Yes (Death, Other)
  Sender: FDA-Public Use
  Company Number: BE-009507513-2007BEL001622

PATIENT
  Age: 55 Year
  Sex: Male

DRUGS (2)
  1. KEYTRUDA [Suspect]
     Active Substance: PEMBROLIZUMAB
     Indication: HEAD AND NECK CANCER
     Dosage: UNK
     Dates: start: 2020, end: 2020
  2. ANTINEOPLASTIC (UNSPECIFIED) [Concomitant]
     Active Substance: UNSPECIFIED INGREDIENT
     Indication: HEAD AND NECK CANCER

REACTIONS (1)
  - Diabetes mellitus [Fatal]

NARRATIVE: CASE EVENT DATE: 202006
